FAERS Safety Report 4346439-4 (Version None)
Quarter: 2004Q2

REPORT INFORMATION
  Report Type: 
  Country: None (occurrence: None)
  Receive Date: 20040426
  Receipt Date: 20020619
  Transmission Date: 20050107
  Serious: Yes (Other)
  Sender: FDA-Public Use
  Company Number: US-BRISTOL-MYERS SQUIBB COMPANY-11918802

PATIENT
  Age: 69 Year
  Sex: Female
  Weight: 59 kg

DRUGS (11)
  1. PARAPLATIN [Suspect]
     Indication: NON-SMALL CELL LUNG CANCER
     Route: 042
     Dates: start: 20020613, end: 20020613
  2. TAXOL [Concomitant]
     Indication: NON-SMALL CELL LUNG CANCER
     Route: 042
     Dates: start: 20020613, end: 20020613
  3. GUAIFENESIN [Concomitant]
  4. ATIVAN [Concomitant]
  5. PREDNISONE [Concomitant]
  6. INHALERS [Concomitant]
  7. RADIATION THERAPY [Concomitant]
  8. TAGAMET [Concomitant]
     Indication: PREMEDICATION
  9. BENADRYL [Concomitant]
     Indication: PREMEDICATION
  10. ANZEMET [Concomitant]
     Indication: PREMEDICATION
  11. DECADRON [Concomitant]
     Indication: PREMEDICATION

REACTIONS (1)
  - HYPERSENSITIVITY [None]
